FAERS Safety Report 7875320-9 (Version None)
Quarter: 2011Q4

REPORT INFORMATION
  Report Type: 
  Country: None (occurrence: None)
  Receive Date: 20111031
  Receipt Date: 20111017
  Transmission Date: 20120403
  Serious: Yes (Other)
  Sender: FDA-Public Use
  Company Number: PHHY2011JP90163

PATIENT

DRUGS (1)
  1. LETROZOLE [Suspect]

REACTIONS (3)
  - PYREXIA [None]
  - LUNG DISORDER [None]
  - COUGH [None]
